FAERS Safety Report 7605051-1 (Version None)
Quarter: 2011Q3

REPORT INFORMATION
  Report Type: 
  Country: None (occurrence: None)
  Receive Date: 20110713
  Receipt Date: 20080915
  Transmission Date: 20111222
  Serious: Yes (Other)
  Sender: FDA-Public Use
  Company Number: US-BAYER-200833399NA

PATIENT
  Age: 65 Year
  Sex: Male
  Weight: 125 kg

DRUGS (22)
  1. TRASYLOL [Suspect]
     Dosage: 50 ML/HR INFUSION
     Route: 042
     Dates: start: 20050726, end: 20050726
  2. ACETYLSALICYLIC ACID SRT [Concomitant]
     Dosage: 81 MG, QD
     Route: 048
  3. ZINACEF [Concomitant]
     Dosage: 1.5 G, UNK
     Route: 042
     Dates: start: 20050726
  4. PROTAMINE SULFATE [Suspect]
     Dosage: UNK
     Route: 042
     Dates: start: 20050726
  5. RED BLOOD CELLS [Concomitant]
     Dosage: 4 U, ONCE
     Route: 042
     Dates: start: 20050726
  6. HYDROCHLOROTHIAZIDE [Concomitant]
     Dosage: 25 MG, QD
     Route: 048
  7. FRESH FROZEN PLASMA [Concomitant]
     Dosage: 4 U, ONCE
     Route: 042
     Dates: start: 20050726
  8. TOPROL-XL [Concomitant]
     Dosage: 25 MG, QD
     Route: 048
  9. VANCOMYCIN [Concomitant]
     Dosage: 1 G, UNK
     Route: 042
     Dates: start: 20050726
  10. LIPITOR [Concomitant]
     Dosage: 10 MG, QD
     Route: 048
  11. ATENOLOL [Concomitant]
     Dosage: 100 MG, QD
     Route: 048
  12. HEPARIN [Concomitant]
     Dosage: 40000 U, UNK
     Route: 042
     Dates: start: 20050726
  13. FENTANYL-100 [Concomitant]
     Dosage: UNK
     Route: 042
     Dates: start: 20050726
  14. MIDAZOLAM HCL [Concomitant]
     Dosage: 5 MG, UNK
     Route: 042
     Dates: start: 20050726
  15. NOREPINEPHRINE BITARTRATE [Concomitant]
     Dosage: TITRATED
     Route: 042
     Dates: start: 20050726
  16. TRASYLOL [Suspect]
     Indication: CORONARY ARTERY BYPASS
     Dosage: 1 ML, ONCE
     Route: 042
     Dates: start: 20050726, end: 20050726
  17. TRASYLOL [Suspect]
     Indication: AORTIC VALVE REPLACEMENT
     Dosage: 200ML LOADING DOSE
     Route: 042
     Dates: start: 20050726, end: 20050726
  18. LISINOPRIL [Concomitant]
     Dosage: 5 MG, QD
     Route: 048
  19. PLATELETS [Concomitant]
     Dosage: 12 BUTTONS
     Route: 042
     Dates: start: 20050726
  20. ACCUPRIL [Concomitant]
     Dosage: 20 MG, QD
     Route: 048
  21. LASIX [Concomitant]
     Dosage: 10 MG, QD
     Route: 048
  22. CEFUROXIME [Concomitant]
     Dosage: 1.5 G, UNK
     Route: 042
     Dates: start: 20050726

REACTIONS (8)
  - ANXIETY [None]
  - UNEVALUABLE EVENT [None]
  - DEPRESSION [None]
  - FEAR [None]
  - INJURY [None]
  - RENAL FAILURE [None]
  - PAIN [None]
  - ANHEDONIA [None]
